FAERS Safety Report 15142312 (Version 1)
Quarter: 2018Q3

REPORT INFORMATION
  Report Type: Spontaneous
  Country: IT (occurrence: IT)
  Receive Date: 20180713
  Receipt Date: 20180713
  Transmission Date: 20181010
  Serious: Yes (Hospitalization, Other)
  Sender: FDA-Public Use
  Company Number: IT-GLAXOSMITHKLINE-IT2018120525

PATIENT
  Age: 24 Year
  Sex: Female

DRUGS (2)
  1. LAMICTAL [Suspect]
     Active Substance: LAMOTRIGINE
     Indication: BULIMIA NERVOSA
     Dosage: IN TOTAL
     Route: 048
     Dates: start: 20180511, end: 20180511
  2. CIPRALEX [Suspect]
     Active Substance: ESCITALOPRAM OXALATE
     Indication: BULIMIA NERVOSA
     Dosage: IN TOTAL
     Route: 065
     Dates: start: 20180511, end: 20180511

REACTIONS (7)
  - Intentional self-injury [Recovered/Resolved]
  - Overdose [Recovered/Resolved]
  - Loss of consciousness [Recovered/Resolved]
  - Mydriasis [Recovered/Resolved]
  - Tachycardia [Recovered/Resolved]
  - Hyperreflexia [Recovered/Resolved]
  - Nystagmus [Recovered/Resolved]

NARRATIVE: CASE EVENT DATE: 20180511
